FAERS Safety Report 18516161 (Version 2)
Quarter: 2020Q4

REPORT INFORMATION
  Report Type: Report from Study
  Country: US (occurrence: US)
  Receive Date: 20201118
  Receipt Date: 20201230
  Transmission Date: 20210114
  Serious: Yes (Hospitalization)
  Sender: FDA-Public Use
  Company Number: NVSC2020US284490

PATIENT
  Age: 18 Year
  Sex: Male

DRUGS (6)
  1. INC424A [Suspect]
     Active Substance: RUXOLITINIB
     Indication: ACUTE LYMPHOCYTIC LEUKAEMIA
     Dosage: 100 MG, BID, 14D ON/14D OFF
     Route: 048
     Dates: start: 20191015
  2. VINCRISTINE [Suspect]
     Active Substance: VINCRISTINE
     Indication: ACUTE LYMPHOCYTIC LEUKAEMIA
     Dosage: 2 MILLIGRAM, Q29D
     Route: 042
     Dates: start: 20191028
  3. METHOTREXATE. [Suspect]
     Active Substance: METHOTREXATE
     Indication: ACUTE LYMPHOCYTIC LEUKAEMIA
     Dosage: 15 MILLIGRAM X1 (D1, D29)
     Route: 037
     Dates: start: 20191014
  4. METHOTREXATE. [Suspect]
     Active Substance: METHOTREXATE
     Dosage: 42.5 MILLIGRAM, Q7D
     Route: 048
     Dates: start: 20200824
  5. PREDNISONE. [Suspect]
     Active Substance: PREDNISONE
     Indication: ACUTE LYMPHOCYTIC LEUKAEMIA
     Dosage: 40 MILLIGRAM, BID, X5D (Q29D)
     Route: 048
     Dates: start: 20200727
  6. MERCAPTOPURINE. [Suspect]
     Active Substance: MERCAPTOPURINE
     Indication: ACUTE LYMPHOCYTIC LEUKAEMIA
     Dosage: 150 MG M-F/200 MG SS, QHS
     Route: 048
     Dates: start: 20191015

REACTIONS (2)
  - Salmonella bacteraemia [Recovered/Resolved]
  - Anaemia [Recovered/Resolved]

NARRATIVE: CASE EVENT DATE: 20201004
